FAERS Safety Report 15353310 (Version 2)
Quarter: 2018Q3

REPORT INFORMATION
  Report Type: Spontaneous
  Country: JP (occurrence: JP)
  Receive Date: 20180905
  Receipt Date: 20180920
  Transmission Date: 20181010
  Serious: Yes (Life-Threatening, Hospitalization, Disabling)
  Sender: FDA-Public Use
  Company Number: JP-ELI_LILLY_AND_COMPANY-JP201809001554

PATIENT
  Age: 72 Year
  Sex: Male

DRUGS (1)
  1. ERBITUX [Suspect]
     Active Substance: CETUXIMAB
     Indication: HEAD AND NECK CANCER
     Dosage: UNK, UNKNOWN
     Route: 041
     Dates: end: 201807

REACTIONS (6)
  - Myocardial infarction [Recovering/Resolving]
  - Interstitial lung disease [Recovering/Resolving]
  - Retroperitoneal haematoma [Recovering/Resolving]
  - Pulmonary embolism [Unknown]
  - Angina pectoris [Recovering/Resolving]
  - Coronary artery embolism [Recovering/Resolving]

NARRATIVE: CASE EVENT DATE: 2018
